FAERS Safety Report 7109080-6 (Version None)
Quarter: 2010Q4

REPORT INFORMATION
  Report Type: 
  Country: None (occurrence: None)
  Receive Date: 20101117
  Receipt Date: 20101108
  Transmission Date: 20110411
  Serious: Yes (Congenital Anomaly, Other)
  Sender: FDA-Public Use
  Company Number: US-PFIZER INC-2010145885

PATIENT

DRUGS (5)
  1. NEURONTIN [Suspect]
     Dosage: 600 MG, 3X/DAY
     Route: 064
     Dates: end: 20100201
  2. CHANTIX [Suspect]
     Dosage: 0.1 MG TO 0.2 MG ONE TO TWO TIMES PER DAY
     Route: 064
     Dates: end: 20100201
  3. AMBIEN [Suspect]
     Indication: SLEEP DISORDER
     Dosage: 5 MG, UNK
     Route: 064
     Dates: start: 20090901, end: 20100201
  4. LAMICTAL [Suspect]
     Dosage: 200 MG/DAILY
     Route: 064
     Dates: end: 20100201
  5. ADDERALL XR 10 [Suspect]
     Dosage: 25 MG, EVERY MORNING
     Route: 064
     Dates: start: 20070101, end: 20100201

REACTIONS (2)
  - CLEFT PALATE [None]
  - DRUG EXPOSURE DURING PREGNANCY [None]
